FAERS Safety Report 8258764-5 (Version None)
Quarter: 2012Q2

REPORT INFORMATION
  Report Type: 
  Country: None (occurrence: None)
  Receive Date: 20120404
  Receipt Date: 20120323
  Transmission Date: 20120825
  Serious: Yes (Other)
  Sender: FDA-Public Use
  Company Number: US-SANOFI-AVENTIS-2011SA026589

PATIENT
  Age: 86 Year
  Sex: Male
  Weight: 81 kg

DRUGS (20)
  1. FLONASE [Concomitant]
     Route: 048
     Dates: start: 20080501
  2. METOPROLOL SUCCINATE [Concomitant]
     Route: 048
     Dates: start: 20110113
  3. MULTAQ [Suspect]
     Indication: ATRIAL FIBRILLATION
     Route: 048
     Dates: start: 20110207
  4. CHONDROITIN SULFATE [Concomitant]
     Dates: start: 20090630
  5. GLUCOSAMINE [Concomitant]
     Dates: start: 20090630
  6. MULTI-VITAMINS [Concomitant]
     Dates: start: 20090630
  7. TERAZOSIN HCL [Concomitant]
     Route: 048
     Dates: start: 20080501
  8. LOVASTATIN [Concomitant]
     Dates: start: 20080501
  9. CLOBETASOL PROPIONATE [Concomitant]
     Route: 061
     Dates: start: 20090630
  10. ALPHA LIPOIC ACID [Concomitant]
     Dates: start: 20090630
  11. NITROGLYCERIN [Concomitant]
     Route: 048
     Dates: start: 20080501
  12. MUPIROCIN [Concomitant]
     Route: 061
     Dates: start: 20090630
  13. FISH OIL [Concomitant]
     Route: 048
     Dates: start: 20090630
  14. LEVOTHYROXINE SODIUM [Concomitant]
     Dates: start: 20080501
  15. NIACIN [Concomitant]
     Dates: start: 20100223
  16. METOPROLOL SUCCINATE [Concomitant]
     Route: 048
     Dates: start: 20101223, end: 20110113
  17. ALBUTEROL [Concomitant]
  18. COQ10 [Concomitant]
     Route: 048
     Dates: start: 20101223
  19. ASPIRIN [Concomitant]
  20. WARFARIN SODIUM [Concomitant]
     Dates: start: 20080101

REACTIONS (1)
  - CARDIAC FAILURE CONGESTIVE [None]
